FAERS Safety Report 8350407-5 (Version None)
Quarter: 2012Q2

REPORT INFORMATION
  Report Type: 
  Country: None (occurrence: None)
  Receive Date: 20120510
  Receipt Date: 20120503
  Transmission Date: 20120825
  Serious: Yes (Hospitalization)
  Sender: FDA-Public Use
  Company Number: US-BAYER-2011-003060

PATIENT
  Age: 26 Year
  Sex: Female
  Weight: 79 kg

DRUGS (13)
  1. AMITIZA [Concomitant]
     Dosage: 24 MCG
  2. REGLAN [Concomitant]
  3. MIRALAX [Concomitant]
     Dosage: 17 GM IN WATER
  4. ZOFRAN [Concomitant]
     Indication: NAUSEA
     Dosage: 4 MG, PRN
     Dates: start: 20060101
  5. METOCLOPRAMIDE [Concomitant]
     Indication: VOMITING
  6. BENEFIBER [Concomitant]
     Dosage: UNK UNK, TID
  7. ZOFRAN [Concomitant]
     Indication: VOMITING
     Dosage: UNK UNK, PRN
  8. METOCLOPRAMIDE [Concomitant]
     Indication: NAUSEA
     Dosage: PER PFS; 8 MG EVERY 6 HOURS. PER MR; 10MG PRN.
  9. YASMIN [Suspect]
     Indication: ORAL CONTRACEPTION
     Dosage: UNK
     Dates: start: 20050101, end: 20070608
  10. LORTAB [Concomitant]
     Indication: ABDOMINAL PAIN
     Dosage: UNK
     Dates: start: 20060101
  11. PERCOCET [Concomitant]
     Indication: PAIN
  12. LEXAPRO [Concomitant]
     Dosage: 5 MG, QD
  13. FIBERCON [Concomitant]

REACTIONS (5)
  - PULMONARY EMBOLISM [None]
  - PAIN [None]
  - PAINFUL RESPIRATION [None]
  - TACHYCARDIA [None]
  - CHEST PAIN [None]
